FAERS Safety Report 4628764-2 (Version None)
Quarter: 2005Q2

REPORT INFORMATION
  Report Type: 
  Country: None (occurrence: None)
  Receive Date: 20050406
  Receipt Date: 20050317
  Transmission Date: 20051028
  Serious: Yes (Hospitalization)
  Sender: FDA-Public Use
  Company Number: 163-20785-05030475

PATIENT
  Age: 69 Year
  Sex: Male
  Weight: 114.76 kg

DRUGS (4)
  1. THALOMID [Suspect]
     Indication: ACUTE MYELOID LEUKAEMIA
     Dosage: 250 MG DAILY ORAL
     Route: 048
     Dates: start: 20050218, end: 20050301
  2. TOPOTECAN (TOPOTECAN) [Suspect]
     Indication: ACUTE MYELOID LEUKAEMIA
     Dosage: 1.6 MG, OVER 24 HR X3 DOSES, INTRAVENOUS
     Route: 042
     Dates: start: 20050216, end: 20050220
  3. FLUDARABINE PHOSPHATE [Suspect]
     Indication: ACUTE MYELOID LEUKAEMIA
     Dosage: 28 MG, OVER 30 SECX5 DAYS INTRAVENOUS
     Route: 042
     Dates: start: 20050211, end: 20050215
  4. CARBOPLATIN [Suspect]
     Indication: ACUTE MYELOID LEUKAEMIA
     Dosage: 235 MG, OVER 24 SEC X5 DAYS
     Dates: start: 20050211, end: 20050216

REACTIONS (10)
  - ATELECTASIS [None]
  - BLOOD PH DECREASED [None]
  - DYSPNOEA EXERTIONAL [None]
  - PLATELET COUNT DECREASED [None]
  - PLEURAL EFFUSION [None]
  - PULMONARY ALVEOLAR HAEMORRHAGE [None]
  - PULMONARY CONGESTION [None]
  - PULMONARY EMBOLISM [None]
  - THERAPY NON-RESPONDER [None]
  - WHITE BLOOD CELL COUNT DECREASED [None]
